FAERS Safety Report 9145325 (Version 1)
Quarter: 2013Q1

REPORT INFORMATION
  Report Type: Spontaneous
  Country: US (occurrence: None)
  Receive Date: 20130131
  Receipt Date: 20130131
  Transmission Date: 20140127
  Serious: Yes (Death)
  Sender: FDA-Public Use
  Company Number: IMP_06220_2013

PATIENT
  Age: 51 Year
  Sex: Female

DRUGS (7)
  1. DOXYCYCLINE [Suspect]
     Indication: PRODUCT USED FOR UNKNOWN INDICATION
     Dosage: (DF ORAL)?(UNKNOWN UNTIL NOT CONTINUING)
     Route: 048
  2. ANTIDEPRESSANTS [Suspect]
     Indication: PRODUCT USED FOR UNKNOWN INDICATION
     Dosage: (DF  ORAL)?(UNKNOWN UNTIL NOT CONTINUING)
     Route: 048
  3. METHOCARBAMOL [Suspect]
     Indication: PRODUCT USED FOR UNKNOWN INDICATION
     Dosage: (DF  ORAL)?(UNKNOWN UNTIL NOT CONTINUING)
     Route: 048
  4. ANGIOTENSIN-COVERTING ENZYME INHIBITOR [Suspect]
     Indication: PRODUCT USED FOR UNKNOWN INDICATION
     Dosage: (DF  ORAL)?(UNKNOWN UNTIL NOT CONTINUING)
     Route: 048
  5. ANTICONVULSANT [Suspect]
     Indication: PRODUCT USED FOR UNKNOWN INDICATION
     Dosage: (DF  ORAL)?(UNKNOWN UNTIL NOT CONTINUING)
     Route: 048
  6. BENZODIAZEPINE [Suspect]
     Indication: PRODUCT USED FOR UNKNOWN INDICATION
     Dosage: (DF  ORAL)?(UNKNOWN UNTIL NOT CONTINUING)
     Route: 048
  7. IBUPROFEN [Suspect]
     Indication: PRODUCT USED FOR UNKNOWN INDICATION
     Dosage: (DF  ORAL)?(UNKNOWN UNTIL NOT CONTINUING)
     Route: 048

REACTIONS (4)
  - Cardiac arrest [None]
  - Respiratory arrest [None]
  - Poisoning [None]
  - Drug abuse [None]
